FAERS Safety Report 14631892 (Version 2)
Quarter: 2018Q2

REPORT INFORMATION
  Report Type: Report from Study
  Country: US (occurrence: US)
  Receive Date: 20180313
  Receipt Date: 20180630
  Transmission Date: 20180711
  Serious: No
  Sender: FDA-Public Use
  Company Number: PHEH2018US009848

PATIENT
  Sex: Male

DRUGS (2)
  1. ENTRESTO [Suspect]
     Active Substance: SACUBITRIL\VALSARTAN
     Indication: ARRHYTHMIA
     Dosage: 0.5 DF, BID
     Route: 048
  2. ENTRESTO [Suspect]
     Active Substance: SACUBITRIL\VALSARTAN
     Dosage: (24 MG SACUBITRIL/26 MG VALSARTAN), BID
     Route: 048

REACTIONS (7)
  - Prostatic disorder [Unknown]
  - Fatigue [Unknown]
  - Wrong technique in product usage process [Unknown]
  - Urine flow decreased [Unknown]
  - Micturition urgency [Unknown]
  - Feeling abnormal [Unknown]
  - Product use in unapproved indication [Unknown]
